FAERS Safety Report 8982838 (Version 3)
Quarter: 2013Q1

REPORT INFORMATION
  Report Type: Spontaneous
  Country: US (occurrence: US)
  Receive Date: 20121221
  Receipt Date: 20130226
  Transmission Date: 20140127
  Serious: Yes (Hospitalization)
  Sender: FDA-Public Use
  Company Number: US-ROCHE-1171780

PATIENT
  Age: 61 Year
  Sex: Female

DRUGS (38)
  1. DEMADEX [Suspect]
     Indication: POLYURIA
     Route: 048
     Dates: start: 20071115
  2. REVATIO [Suspect]
     Indication: PULMONARY ARTERIAL HYPERTENSION
     Route: 065
     Dates: start: 20060209, end: 20120808
  3. ZAROXOLYN [Suspect]
     Indication: POLYURIA
     Route: 048
     Dates: start: 20060131
  4. URSODIOL [Concomitant]
     Route: 048
  5. BACLOFEN [Concomitant]
     Indication: CONSTIPATION
     Route: 048
  6. ACARBOSE [Concomitant]
     Indication: DIABETES MELLITUS
     Route: 048
  7. PARACETAMOL [Concomitant]
     Indication: PAIN
     Route: 048
  8. PARACETAMOL [Concomitant]
     Indication: MIGRAINE
  9. ALLOPURINOL [Concomitant]
     Indication: GOUT
     Route: 048
  10. CELECOXIB [Concomitant]
     Indication: PAIN
     Route: 048
  11. CLONAZEPAM [Concomitant]
     Indication: ANXIETY
     Route: 048
     Dates: start: 20091116
  12. CLOPIDOGREL [Concomitant]
     Route: 048
     Dates: start: 20060131, end: 20120619
  13. CYANOCOBALAMIN [Concomitant]
     Indication: ANAEMIA
     Route: 030
     Dates: start: 20060131
  14. CYCLOSPORINE [Concomitant]
     Indication: DRY EYE
     Route: 047
     Dates: start: 20110418
  15. DICLOFENAC [Concomitant]
  16. DOMPERIDONE [Concomitant]
     Route: 048
  17. DOXYCYCLINE [Concomitant]
     Route: 048
     Dates: start: 20110310, end: 20111220
  18. DULOXETINE [Concomitant]
     Indication: DEPRESSION
     Route: 065
     Dates: start: 20070524
  19. DULOXETINE [Concomitant]
     Indication: ANXIETY
  20. ESOMEPRAZOLE [Concomitant]
     Route: 065
     Dates: start: 20060309
  21. EZETIMIBE [Concomitant]
     Route: 048
     Dates: start: 20060131
  22. FENOFIBRIC ACID [Concomitant]
     Indication: HYPERCHOLESTEROLAEMIA
     Route: 048
  23. FENTANYL [Concomitant]
     Indication: PAIN
     Route: 062
  24. FEXOFENADINE [Concomitant]
     Indication: RHINITIS
     Route: 065
     Dates: start: 20090209
  25. HYDROMORPHONE [Concomitant]
     Indication: PAIN
     Dosage: EVERY 4-6 HRS PRN
     Route: 048
     Dates: start: 20091116
  26. INSULIN DETEMIR [Concomitant]
     Indication: DIABETES MELLITUS
     Dosage: 50 UNITS
     Route: 058
     Dates: start: 20080204
  27. IPRATROPIUM INHALER [Concomitant]
     Indication: RHINITIS
     Route: 045
     Dates: start: 20060131
  28. LIDOCAINE [Concomitant]
     Indication: PAIN
     Route: 061
     Dates: start: 20080220
  29. LIPITOR [Concomitant]
     Indication: CORONARY ARTERY DISEASE
     Route: 048
     Dates: start: 20060131
  30. LUNESTA [Concomitant]
     Dosage: AS REQUIRED
     Route: 065
     Dates: start: 20070108, end: 20120112
  31. MODAFINIL [Concomitant]
     Indication: SLEEP DISORDER
     Route: 048
  32. OMEGA-3 [Concomitant]
     Indication: CORONARY ARTERY DISEASE
     Route: 048
  33. FORTAGESIC [Concomitant]
     Indication: PAIN
     Dosage: EVERY 6 HOURS PRN
     Route: 048
     Dates: start: 20080220, end: 20120112
  34. FORTAGESIC [Concomitant]
     Dosage: EVERY 6 HOURS PRN
     Route: 048
  35. MACROGOL [Concomitant]
     Indication: CONSTIPATION
     Route: 048
     Dates: start: 20060131
  36. PROTOPIC [Concomitant]
     Route: 061
     Dates: start: 20060223
  37. SITAGLIPTIN [Concomitant]
     Indication: TYPE 2 DIABETES MELLITUS
     Route: 048
  38. SURFAK (UNITED STATES) [Concomitant]
     Route: 048

REACTIONS (2)
  - Pulmonary arterial hypertension [Recovered/Resolved]
  - Neurogenic bladder [Unknown]
